FAERS Safety Report 5765661-3 (Version None)
Quarter: 2008Q2

REPORT INFORMATION
  Report Type: 
  Country: None (occurrence: None)
  Receive Date: 20080606
  Receipt Date: 20080527
  Transmission Date: 20081010
  Serious: Yes (Hospitalization)
  Sender: FDA-Public Use
  Company Number: 1-16196090

PATIENT
  Age: 17 Year
  Sex: Male
  Weight: 80.7403 kg

DRUGS (1)
  1. SOLODYN [Suspect]
     Indication: ACNE
     Dosage: 1 TABLET DAILY ORALLY
     Route: 048
     Dates: start: 20080418, end: 20080424

REACTIONS (6)
  - DRUG HYPERSENSITIVITY [None]
  - DYSPNOEA [None]
  - DYSURIA [None]
  - INFECTIOUS MONONUCLEOSIS [None]
  - URTICARIA [None]
  - WHITE BLOOD CELL COUNT DECREASED [None]
